FAERS Safety Report 13949340 (Version 1)
Quarter: 2017Q3

REPORT INFORMATION
  Report Type: Spontaneous
  Country: US (occurrence: US)
  Receive Date: 20170908
  Receipt Date: 20170908
  Transmission Date: 20171128
  Serious: No
  Sender: FDA-Public Use
  Company Number: US-ROCHE-1135998

PATIENT
  Age: 52 Year
  Sex: Female

DRUGS (6)
  1. RITUXAN [Suspect]
     Active Substance: RITUXIMAB
     Indication: CHRONIC LYMPHOCYTIC LEUKAEMIA
  2. RITUXAN [Suspect]
     Active Substance: RITUXIMAB
     Indication: HYPERTENSIVE HEART DISEASE
  3. RITUXAN [Suspect]
     Active Substance: RITUXIMAB
     Indication: OFF LABEL USE
  4. RITUXAN [Suspect]
     Active Substance: RITUXIMAB
     Indication: HYPERTENSIVE NEPHROPATHY
     Route: 065
  5. FLUDARABINE [Concomitant]
     Active Substance: FLUDARABINE PHOSPHATE
  6. CYTOXAN [Concomitant]
     Active Substance: CYCLOPHOSPHAMIDE

REACTIONS (3)
  - Pyrexia [Unknown]
  - Tachycardia [Unknown]
  - Malaise [Unknown]

NARRATIVE: CASE EVENT DATE: 20010627
